FAERS Safety Report 9234467 (Version 1)
Quarter: 2013Q2

REPORT INFORMATION
  Report Type: Spontaneous
  Country: US (occurrence: US)
  Receive Date: 20130416
  Receipt Date: 20130416
  Transmission Date: 20140414
  Serious: Yes (Other)
  Sender: FDA-Public Use
  Company Number: US-GLAXOSMITHKLINE-A1019441A

PATIENT
  Age: 48 Year
  Sex: Male

DRUGS (2)
  1. ADVAIR [Suspect]
     Indication: CHRONIC OBSTRUCTIVE PULMONARY DISEASE
     Dosage: 1PUFF TWICE PER DAY
     Route: 055
     Dates: end: 20130403
  2. NO CONCURRENT MEDICATION [Concomitant]

REACTIONS (7)
  - Choking [Recovering/Resolving]
  - Cough [Recovering/Resolving]
  - Pharyngeal oedema [Recovering/Resolving]
  - Retching [Recovering/Resolving]
  - Oropharyngeal pain [Recovering/Resolving]
  - Adverse drug reaction [Recovering/Resolving]
  - Lacrimation increased [Recovering/Resolving]
